FAERS Safety Report 8019432-8 (Version None)
Quarter: 2012Q1

REPORT INFORMATION
  Report Type: 
  Country: None (occurrence: None)
  Receive Date: 20120103
  Receipt Date: 20111227
  Transmission Date: 20120608
  Serious: Yes (Other)
  Sender: FDA-Public Use
  Company Number: PHHY2011VE113664

PATIENT
  Sex: Female

DRUGS (3)
  1. BIDROXYL [Concomitant]
     Dosage: 500 MG, BID
  2. KETOPROFEN [Concomitant]
     Dosage: 150 MG, BID
  3. ZOLEDRONOC ACID [Suspect]
     Indication: OSTEOPOROSIS
     Dosage: 5 MG, UNK
     Route: 042
     Dates: start: 20110301

REACTIONS (1)
  - CELLULITIS [None]
